FAERS Safety Report 22027985 (Version 1)
Quarter: 2023Q1

REPORT INFORMATION
  Report Type: Spontaneous
  Country: US (occurrence: None)
  Receive Date: 20230220
  Receipt Date: 20230220
  Transmission Date: 20230418
  Serious: Yes (Disabling)
  Sender: FDA-Public Use
  Company Number: None

PATIENT
  Age: 77 Year
  Sex: Female
  Weight: 59.4 kg

DRUGS (17)
  1. STRIVERDI RESPIMAT [Suspect]
     Active Substance: OLODATEROL HYDROCHLORIDE
     Indication: Chronic obstructive pulmonary disease
     Dosage: OTHER QUANTITY : 1 INHALATION(S);?FREQUENCY : DAILY;?
     Route: 055
  2. O2 concentrator [Concomitant]
  3. ALBUTEROL\IPRATROPIUM [Concomitant]
     Active Substance: ALBUTEROL\IPRATROPIUM
  4. nebulizer solution [Concomitant]
  5. VITAMIN C [Concomitant]
     Active Substance: ASCORBIC ACID
  6. ASPIRIN [Concomitant]
     Active Substance: ASPIRIN
  7. VITAMIN D [Concomitant]
     Active Substance: VITAMIN D NOS
  8. RESTASIS [Concomitant]
     Active Substance: CYCLOSPORINE
  9. OMEGA 3 [Concomitant]
     Active Substance: CAPSAICIN
  10. BONIVA [Concomitant]
     Active Substance: IBANDRONATE SODIUM
  11. lactobacillus rhamnosus GG (culturelle) [Concomitant]
  12. ATIVAN [Concomitant]
     Active Substance: LORAZEPAM
  13. multivitamin one daily [Concomitant]
  14. simvastatin (Zocar) [Concomitant]
  15. Verapamil (Calan-SR) [Concomitant]
  16. LOSARTAN POTASSIUM [Concomitant]
     Active Substance: LOSARTAN POTASSIUM
  17. IBUPROFEN [Concomitant]
     Active Substance: IBUPROFEN

REACTIONS (5)
  - Chest discomfort [None]
  - Therapy cessation [None]
  - Hypersensitivity [None]
  - Spasmodic dysphonia [None]
  - Ventricular extrasystoles [None]

NARRATIVE: CASE EVENT DATE: 20221122
